FAERS Safety Report 4981235-6 (Version None)
Quarter: 2006Q2

REPORT INFORMATION
  Report Type: 
  Country: None (occurrence: None)
  Receive Date: 20060418
  Receipt Date: 20060403
  Transmission Date: 20061013
  Serious: Yes (Hospitalization)
  Sender: FDA-Public Use
  Company Number: JS-ELI_LILLY_AND_CO_US

PATIENT
  Age: 42 Year
  Sex: Female

DRUGS (11)
  1. PERMAX [Suspect]
     Indication: MUSCLE TWITCHING
     Dosage: SEE IMAGE
     Dates: start: 19960820
  2. PERMAX [Suspect]
     Indication: MUSCLE TWITCHING
     Dosage: SEE IMAGE
     Dates: start: 20010101
  3. WELLBUTRIN - SLOW [Concomitant]
  4. RELEASE [Concomitant]
  5. LORAZEPAM [Concomitant]
  6. CLONAZEPAM [Concomitant]
  7. GABAPENTIN [Concomitant]
  8. TRAMADOL HCL [Concomitant]
  9. TEMAZEPAM [Concomitant]
  10. TRAZODONE HCL [Concomitant]
  11. VIOXX [Concomitant]

REACTIONS (23)
  - ANXIETY [None]
  - AORTIC VALVE SCLEROSIS [None]
  - CARDIAC FUNCTION DISTURBANCE POSTOPERATIVE [None]
  - CARDIAC HYPERTROPHY [None]
  - COMPULSIONS [None]
  - DEPRESSION [None]
  - DILATATION ATRIAL [None]
  - DIZZINESS [None]
  - DRUG INEFFECTIVE [None]
  - ENDOCARDITIS [None]
  - FOOT FRACTURE [None]
  - HAND FRACTURE [None]
  - HYSTERECTOMY [None]
  - INSOMNIA [None]
  - MARITAL PROBLEM [None]
  - MASS [None]
  - MITRAL VALVE INCOMPETENCE [None]
  - NERVOUS SYSTEM DISORDER [None]
  - OBSESSIVE-COMPULSIVE DISORDER [None]
  - PATHOLOGICAL GAMBLING [None]
  - SALPINGO-OOPHORECTOMY BILATERAL [None]
  - SUICIDAL IDEATION [None]
  - TRICUSPID VALVE INCOMPETENCE [None]
